FAERS Safety Report 6129442-3 (Version None)
Quarter: 2009Q1

REPORT INFORMATION
  Report Type: 
  Country: None (occurrence: None)
  Receive Date: 20090324
  Receipt Date: 20090312
  Transmission Date: 20090719
  Serious: Yes (Other)
  Sender: FDA-Public Use
  Company Number: GB-PFIZER INC-2009162700

PATIENT

DRUGS (1)
  1. NEURONTIN [Suspect]

REACTIONS (1)
  - DRUG WITHDRAWAL CONVULSIONS [None]
